FAERS Safety Report 19056213 (Version 1)
Quarter: 2021Q1

REPORT INFORMATION
  Report Type: Spontaneous
  Country: US (occurrence: US)
  Receive Date: 20210324
  Receipt Date: 20210324
  Transmission Date: 20210420
  Serious: Yes (Hospitalization)
  Sender: FDA-Public Use
  Company Number: None

PATIENT
  Age: 71 Year
  Sex: Female

DRUGS (10)
  1. ASPIRIN CHW [Concomitant]
  2. LOSARTAN POT [Concomitant]
     Active Substance: LOSARTAN POTASSIUM
  3. PROCHLORPER [Concomitant]
  4. MESALAMINE. [Concomitant]
     Active Substance: MESALAMINE
  5. TEMOZOLOMIDE 140MG CAP [Suspect]
     Active Substance: TEMOZOLOMIDE
     Indication: BRAIN NEOPLASM MALIGNANT
     Route: 048
     Dates: start: 20201030
  6. VIMPAT [Concomitant]
     Active Substance: LACOSAMIDE
  7. BIOTIN [Concomitant]
     Active Substance: BIOTIN
  8. MELATONIN [Concomitant]
     Active Substance: MELATONIN
  9. TYLENOL [Concomitant]
     Active Substance: ACETAMINOPHEN
  10. ZOFRAN [Concomitant]
     Active Substance: ONDANSETRON HYDROCHLORIDE

REACTIONS (1)
  - Illness [None]

NARRATIVE: CASE EVENT DATE: 20210323
